FAERS Safety Report 24158391 (Version 2)
Quarter: 2024Q3

REPORT INFORMATION
  Report Type: Spontaneous
  Country: US (occurrence: US)
  Receive Date: 20240731
  Receipt Date: 20240805
  Transmission Date: 20241016
  Serious: Yes (Hospitalization)
  Sender: EISAI
  Company Number: US-Eisai-EC-2024-171085

PATIENT
  Age: 67 Year
  Sex: Male
  Weight: 103.2 kg

DRUGS (1)
  1. LEQEMBI [Suspect]
     Active Substance: LECANEMAB-IRMB
     Indication: Dementia Alzheimer^s type
     Route: 042
     Dates: start: 20240305, end: 20240611

REACTIONS (3)
  - Sepsis [Unknown]
  - Deep vein thrombosis [Unknown]
  - Endocarditis [Unknown]

NARRATIVE: CASE EVENT DATE: 20240622
